FAERS Safety Report 7941658-X (Version None)
Quarter: 2011Q4

REPORT INFORMATION
  Report Type: 
  Country: None (occurrence: None)
  Receive Date: 20111128
  Receipt Date: 20111128
  Transmission Date: 20120403
  Serious: Yes (Hospitalization)
  Sender: FDA-Public Use
  Company Number: None

PATIENT
  Age: 67 Year
  Sex: Female
  Weight: 45.359 kg

DRUGS (3)
  1. GLAUCOMA EYEDROPS [Concomitant]
  2. FLUOXETINE [Suspect]
     Indication: DEPRESSION
     Dosage: 60MG
     Route: 048
  3. ALBUTEROL [Concomitant]

REACTIONS (2)
  - HYPONATRAEMIA [None]
  - BLOOD GLUCOSE DECREASED [None]
